FAERS Safety Report 5044732-3 (Version None)
Quarter: 2006Q2

REPORT INFORMATION
  Report Type: 
  Country: None (occurrence: None)
  Receive Date: 20060601
  Receipt Date: 20060221
  Transmission Date: 20061013
  Serious: No
  Sender: FDA-Public Use
  Company Number: 2006-BP-01944BP

PATIENT
  Age: 80 Year
  Sex: Male

DRUGS (8)
  1. SPIRIVA [Suspect]
     Indication: CHRONIC OBSTRUCTIVE PULMONARY DISEASE
     Dosage: 18 MCG (18 MCG, 1 IN 1 D), IH
     Route: 055
     Dates: start: 20060207
  2. ALBUTEROL SPIROS [Concomitant]
  3. LASIX [Concomitant]
  4. PLAVIX [Concomitant]
  5. CRESTOR [Concomitant]
  6. EFFEXOR [Concomitant]
  7. PREDNISONE TAB [Concomitant]
  8. COREG [Concomitant]

REACTIONS (1)
  - SOMNOLENCE [None]
